FAERS Safety Report 4520559-3 (Version None)
Quarter: 2005Q1

REPORT INFORMATION
  Report Type: 
  Country: None (occurrence: None)
  Receive Date: 20041028
  Receipt Date: 20040716
  Transmission Date: 20050727
  Serious: Yes (Other)
  Sender: FDA-Public Use
  Company Number: HQWYE349822JUL04

PATIENT
  Age: 59 Year
  Sex: Female

DRUGS (2)
  1. PREMARIN [Suspect]
     Dates: start: 19850101, end: 19950101
  2. PROVERA [Suspect]
     Dates: start: 19850101, end: 19950101

REACTIONS (1)
  - BREAST CANCER [None]
